FAERS Safety Report 7949904-3 (Version None)
Quarter: 2011Q4

REPORT INFORMATION
  Report Type: 
  Country: None (occurrence: None)
  Receive Date: 20111125
  Receipt Date: 20111117
  Transmission Date: 20120403
  Serious: Yes (Hospitalization, Other)
  Sender: FDA-Public Use
  Company Number: 2011SP019412

PATIENT
  Age: 36 Year
  Sex: Female
  Weight: 77.1115 kg

DRUGS (3)
  1. SYNTHROID [Concomitant]
  2. NUVARING [Suspect]
     Indication: MENSTRUATION IRREGULAR
     Dates: start: 20090801, end: 20100228
  3. NUVARING [Suspect]
     Indication: ENDOMETRIOSIS
     Dates: start: 20090801, end: 20100228

REACTIONS (18)
  - OVARIAN CYST [None]
  - URINARY TRACT INFECTION [None]
  - MENSTRUATION IRREGULAR [None]
  - STRESS [None]
  - VISION BLURRED [None]
  - INFERTILITY [None]
  - APHASIA [None]
  - CONVERSION DISORDER [None]
  - CONVULSION [None]
  - HYDROURETER [None]
  - CEREBRAL ARTERY THROMBOSIS [None]
  - BLOOD CHOLESTEROL INCREASED [None]
  - PULMONARY EMBOLISM [None]
  - DEAFNESS [None]
  - MIGRAINE [None]
  - HEADACHE [None]
  - ENDOMETRIOSIS [None]
  - IMPAIRED WORK ABILITY [None]
